FAERS Safety Report 6615670-7 (Version None)
Quarter: 2010Q1

REPORT INFORMATION
  Report Type: 
  Country: None (occurrence: None)
  Receive Date: 20100305
  Receipt Date: 20100301
  Transmission Date: 20100710
  Serious: Yes (Other)
  Sender: FDA-Public Use
  Company Number: DE-BAYER-201017470GPV

PATIENT
  Age: 59 Year
  Sex: Male
  Weight: 87 kg

DRUGS (1)
  1. MAGNOGRAF [Suspect]
     Indication: NUCLEAR MAGNETIC RESONANCE IMAGING ABDOMINAL
     Route: 065
     Dates: start: 20100226, end: 20100226

REACTIONS (6)
  - BLISTER [None]
  - FEELING HOT [None]
  - HYPERHIDROSIS [None]
  - HYPERTENSION [None]
  - OROPHARYNGEAL BLISTERING [None]
  - THROAT IRRITATION [None]
